FAERS Safety Report 7349763-6 (Version None)
Quarter: 2011Q1

REPORT INFORMATION
  Report Type: 
  Country: None (occurrence: None)
  Receive Date: 20110314
  Receipt Date: 20110308
  Transmission Date: 20110831
  Serious: Yes (Hospitalization)
  Sender: FDA-Public Use
  Company Number: IN-ASTRAZENECA-2011SE13359

PATIENT
  Age: 45 Year
  Sex: Female
  Weight: 50 kg

DRUGS (4)
  1. NEXIUM IV [Suspect]
     Indication: DIARRHOEA
     Route: 042
     Dates: start: 20110305, end: 20110305
  2. NEXIUM IV [Suspect]
     Indication: ABDOMINAL PAIN
     Route: 042
     Dates: start: 20110305, end: 20110305
  3. NEXIUM IV [Suspect]
     Indication: VOMITING
     Route: 042
     Dates: start: 20110305, end: 20110305
  4. EMESET [Concomitant]

REACTIONS (5)
  - INJECTION SITE ERYTHEMA [None]
  - MUSCLE SPASMS [None]
  - HYPOTENSION [None]
  - INJECTION SITE RASH [None]
  - OXYGEN SATURATION DECREASED [None]
